FAERS Safety Report 21910215 (Version 1)
Quarter: 2023Q1

REPORT INFORMATION
  Report Type: Spontaneous
  Country: US (occurrence: None)
  Receive Date: 20230125
  Receipt Date: 20230125
  Transmission Date: 20230417
  Serious: Yes (Hospitalization)
  Sender: FDA-Public Use
  Company Number: None

PATIENT
  Age: 41 Year
  Sex: Female

DRUGS (2)
  1. DEXTROSE\SODIUM CHLORIDE INJECTION [Suspect]
     Active Substance: DEXTROSE\SODIUM CHLORIDE
     Indication: Mitochondrial myopathy
     Dosage: OTHER FREQUENCY : 5 TIMES WEEKLY;?
     Route: 041
     Dates: start: 20220517, end: 20230119
  2. DEXTROSE\SODIUM CHLORIDE INJECTION [Suspect]
     Active Substance: DEXTROSE\SODIUM CHLORIDE
     Indication: Dehydration

REACTIONS (4)
  - Pyrexia [None]
  - Blood culture positive [None]
  - Infusion related reaction [None]
  - Bacillus test positive [None]

NARRATIVE: CASE EVENT DATE: 20230118
